FAERS Safety Report 18532405 (Version 1)
Quarter: 2020Q4

REPORT INFORMATION
  Report Type: Spontaneous
  Country: US (occurrence: US)
  Receive Date: 20201123
  Receipt Date: 20201123
  Transmission Date: 20210114
  Serious: No
  Sender: FDA-Public Use
  Company Number: US-JNJFOC-20201129724

PATIENT
  Age: 40 Year
  Sex: Male
  Weight: 96.25 kg

DRUGS (2)
  1. PEPCID COMPLETE [Suspect]
     Active Substance: CALCIUM CARBONATE\FAMOTIDINE\MAGNESIUM HYDROXIDE
     Indication: GASTROOESOPHAGEAL REFLUX DISEASE
     Dosage: 1 TABLET 30 MIN BEFORE MEAL ONCE EVERY 2-3 DAYS, THEN TWICE A DAY FOR 3 WEEKS.
     Route: 048
     Dates: start: 20200901, end: 20201031
  2. TERAZOSIN [Concomitant]
     Active Substance: TERAZOSIN HYDROCHLORIDE
     Indication: URINARY TRACT DISORDER
     Dosage: ONCE AT NIGHT
     Route: 065

REACTIONS (2)
  - Nerve compression [Recovering/Resolving]
  - Palpitations [Recovering/Resolving]

NARRATIVE: CASE EVENT DATE: 20200901
